FAERS Safety Report 13280887 (Version 1)
Quarter: 2017Q1

REPORT INFORMATION
  Report Type: Spontaneous
  Country: US (occurrence: US)
  Receive Date: 20170301
  Receipt Date: 20170301
  Transmission Date: 20170428
  Serious: No
  Sender: FDA-Public Use
  Company Number: US-INSYS THERAPEUTICS, INC-INS201607-000328

PATIENT
  Sex: Female

DRUGS (2)
  1. CHLORASEPTIC SORE THROAT [Concomitant]
     Active Substance: PHENOL
  2. SUBSYS [Suspect]
     Active Substance: FENTANYL
     Indication: BREAKTHROUGH PAIN
     Route: 060

REACTIONS (1)
  - Application site irritation [Not Recovered/Not Resolved]
